APPROVED DRUG PRODUCT: PIPERACILLIN AND TAZOBACTAM
Active Ingredient: PIPERACILLIN SODIUM; TAZOBACTAM SODIUM
Strength: EQ 2GM BASE/VIAL;EQ 250MG BASE/VIAL
Dosage Form/Route: INJECTABLE;INJECTION
Application: A065386 | Product #001
Applicant: HOSPIRA INC
Approved: Sep 15, 2009 | RLD: No | RS: No | Type: DISCN